FAERS Safety Report 5201233-7 (Version None)
Quarter: 2007Q1

REPORT INFORMATION
  Report Type: 
  Country: None (occurrence: None)
  Receive Date: 20070103
  Receipt Date: 20061221
  Transmission Date: 20070707
  Serious: Yes (Hospitalization)
  Sender: FDA-Public Use
  Company Number: 15047

PATIENT
  Age: 50 Year
  Sex: Male
  Weight: 49 kg

DRUGS (4)
  1. CARBOPLATIN [Suspect]
     Indication: LUNG NEOPLASM MALIGNANT
     Dates: start: 20050601
  2. PACLITAXEL [Suspect]
     Indication: LUNG NEOPLASM MALIGNANT
     Dosage: 175 MG/M2 Q3W
     Dates: start: 20050601
  3. VINORELBINE [Suspect]
     Indication: LUNG NEOPLASM MALIGNANT
     Dosage: 25 MG/M2 Q3W
     Dates: start: 20050801
  4. VINORELBINE [Suspect]
     Indication: LUNG NEOPLASM MALIGNANT
     Dosage: 25 MG/M2 Q3W

REACTIONS (5)
  - BLOOD PRESSURE INCREASED [None]
  - BONE MARROW FAILURE [None]
  - PLATELET AGGREGATION INCREASED [None]
  - RADIATION OESOPHAGITIS [None]
  - TRANSIENT ISCHAEMIC ATTACK [None]
